FAERS Safety Report 8059980-8 (Version None)
Quarter: 2012Q1

REPORT INFORMATION
  Report Type: 
  Country: None (occurrence: None)
  Receive Date: 20120120
  Receipt Date: 20120105
  Transmission Date: 20120608
  Serious: Yes (Death)
  Sender: FDA-Public Use
  Company Number: GB-WATSON-2011-11561

PATIENT
  Age: 21 Year
  Sex: Male
  Weight: 120 kg

DRUGS (3)
  1. PREGABALIN [Suspect]
     Indication: OBSESSIVE-COMPULSIVE DISORDER
     Dosage: 225 MG, BID
     Route: 048
     Dates: start: 20091101, end: 20110705
  2. QUETIAPINE [Suspect]
     Indication: OBSESSIVE-COMPULSIVE DISORDER
     Dosage: 800 MG, DAILY
     Route: 048
     Dates: start: 20010101, end: 20110705
  3. FLUOXETINE HCL [Suspect]
     Indication: OBSESSIVE-COMPULSIVE DISORDER
     Dosage: 60 MG, DAILY
     Route: 048
     Dates: start: 20091101, end: 20110705

REACTIONS (8)
  - VOMITING [None]
  - PANCREATITIS NECROTISING [None]
  - SEPTIC SHOCK [None]
  - ABDOMINAL PAIN [None]
  - PYREXIA [None]
  - MULTI-ORGAN FAILURE [None]
  - RHABDOMYOLYSIS [None]
  - HYPERPYREXIA [None]
